FAERS Safety Report 12733203 (Version 1)
Quarter: 2016Q3

REPORT INFORMATION
  Report Type: Report from Study
  Country: US (occurrence: US)
  Receive Date: 20160912
  Receipt Date: 20160912
  Transmission Date: 20161109
  Serious: Yes (Hospitalization)
  Sender: FDA-Public Use
  Company Number: US-ABBVIE-16P-163-1720035-00

PATIENT
  Age: 46 Year
  Sex: Male

DRUGS (3)
  1. RIBAVIRIN. [Concomitant]
     Active Substance: RIBAVIRIN
     Indication: HEPATITIS C
     Route: 048
     Dates: start: 20160711, end: 201609
  2. VIEKIRA PAK [Suspect]
     Active Substance: DASABUVIR\OMBITASVIR\PARITAPREVIR\RITONAVIR
     Indication: HEPATITIS C
     Route: 048
     Dates: start: 20160711
  3. RIBAVIRIN. [Concomitant]
     Active Substance: RIBAVIRIN

REACTIONS (2)
  - Transfusion [Unknown]
  - Fluid retention [Unknown]

NARRATIVE: CASE EVENT DATE: 201609
